FAERS Safety Report 6919828-9 (Version None)
Quarter: 2010Q3

REPORT INFORMATION
  Report Type: 
  Country: None (occurrence: None)
  Receive Date: 20100811
  Receipt Date: 20100802
  Transmission Date: 20110219
  Serious: Yes (Hospitalization)
  Sender: FDA-Public Use
  Company Number: US-ASTRAZENECA-2010SE36312

PATIENT
  Age: 828 Month
  Sex: Female

DRUGS (14)
  1. PRILOSEC OTC [Suspect]
     Indication: GASTROOESOPHAGEAL REFLUX DISEASE
     Route: 048
  2. AVAPRO [Concomitant]
     Indication: BLOOD PRESSURE
  3. COUMADIN [Concomitant]
     Indication: THROMBOSIS
     Dosage: DOSAGE CHANGE ACCORDING TO PRO-TIME LEVEL
  4. BONIVA INFUSION [Concomitant]
     Indication: BREAST CANCER
     Dosage: EVERY 3 MOS.
  5. ACTONEL [Concomitant]
  6. ARIMIDEX [Concomitant]
     Indication: BREAST CANCER
  7. NEURONTIN [Concomitant]
     Indication: NEURALGIA
  8. CALCIUM [Concomitant]
     Indication: OSTEOPOROSIS
  9. FLORAVITAL (IRON) [Concomitant]
     Indication: ANAEMIA
     Dosage: 2 TEA SPOONS 3 TIMES A WEEK
     Dates: start: 20060601
  10. WOMEN'S VITAMIN [Concomitant]
     Dosage: 1 DAILY
  11. PROBIOTICS [Concomitant]
     Dosage: 1 DAILY
  12. ESTER-C [Concomitant]
  13. FIBERSMART [Concomitant]
     Dosage: 2 DAILY
  14. PNEUMONIA SHOT / FLU SHOT / H1N1 SHOT [Concomitant]

REACTIONS (2)
  - MALIGNANT BREAST LUMP REMOVAL [None]
  - THROMBOSIS [None]
